FAERS Safety Report 17185056 (Version 1)
Quarter: 2019Q4

REPORT INFORMATION
  Report Type: Spontaneous
  Country: US (occurrence: US)
  Receive Date: 20191219
  Receipt Date: 20191219
  Transmission Date: 20200122
  Serious: Yes (Other)
  Sender: FDA-Public Use
  Company Number: None

PATIENT
  Age: 70 Year
  Sex: Male
  Weight: 81 kg

DRUGS (8)
  1. BUPRENORPHINE\NALOXONE SL [Suspect]
     Active Substance: BUPRENORPHINE\NALOXONE
     Indication: PAIN MANAGEMENT
     Dosage: ?          QUANTITY:1 TABLET(S);?
     Route: 060
  2. VITAMIN E [Concomitant]
     Active Substance: .ALPHA.-TOCOPHEROL
  3. BENADRYL [Concomitant]
     Active Substance: DIPHENHYDRAMINE HYDROCHLORIDE
  4. LASINIPRIL [Concomitant]
  5. DULOXITINE [Concomitant]
     Active Substance: DULOXETINE
  6. AVASTIN [Concomitant]
     Active Substance: BEVACIZUMAB
  7. DILTIZEM [Concomitant]
  8. MULTIPLE VITAMINS [Concomitant]
     Active Substance: VITAMINS

REACTIONS (2)
  - Asthma [None]
  - Wheezing [None]

NARRATIVE: CASE EVENT DATE: 20191218
